FAERS Safety Report 5266024-X (Version None)
Quarter: 2007Q1

REPORT INFORMATION
  Report Type: 
  Country: None (occurrence: None)
  Receive Date: 20070315
  Receipt Date: 20070305
  Transmission Date: 20070707
  Serious: Yes (Other)
  Sender: FDA-Public Use
  Company Number: US-ROCHE-476006

PATIENT
  Age: 3 Year
  Sex: Male

DRUGS (2)
  1. TAMIFLU [Suspect]
     Route: 065
  2. MOTRIN [Concomitant]
     Dosage: THE REPORTER STATED IT WAS CHILDRENS MOTRIN.

REACTIONS (1)
  - HALLUCINATION [None]
